FAERS Safety Report 8317444-8 (Version None)
Quarter: 2012Q2

REPORT INFORMATION
  Report Type: 
  Country: None (occurrence: None)
  Receive Date: 20120427
  Receipt Date: 20120418
  Transmission Date: 20120825
  Serious: Yes (Hospitalization, Other)
  Sender: FDA-Public Use
  Company Number: US-JNJFOC-20120310720

PATIENT
  Sex: Male
  Weight: 33 kg

DRUGS (4)
  1. METHOTREXATE [Concomitant]
  2. REMICADE [Suspect]
     Indication: ANORECTAL DISORDER
     Route: 042
     Dates: start: 20070112
  3. REMICADE [Suspect]
     Route: 042
     Dates: start: 20090709
  4. HUMIRA [Concomitant]

REACTIONS (1)
  - ENTERITIS [None]
